FAERS Safety Report 4985602-6 (Version None)
Quarter: 2006Q2

REPORT INFORMATION
  Report Type: 
  Country: None (occurrence: None)
  Receive Date: 20060426
  Receipt Date: 20060426
  Transmission Date: 20061013
  Serious: Yes (Death)
  Sender: FDA-Public Use
  Company Number: None

PATIENT
  Sex: Female
  Weight: 119 kg

DRUGS (10)
  1. CYCLOPHOSPHAMIDE [Suspect]
     Indication: BREAST CANCER
     Dosage: 1320 MG
     Dates: start: 20060215, end: 20060215
  2. DOXORUBICIN HCL [Suspect]
     Dosage: 132 MG
     Dates: start: 20060215, end: 20060215
  3. ALLOPURINOL [Concomitant]
  4. ATIVAN [Concomitant]
  5. DECADRON [Concomitant]
  6. DIOVAN [Concomitant]
  7. EMEND [Concomitant]
  8. GLUCOSAMINE/CHONDROITEN [Concomitant]
  9. LASIX [Concomitant]
  10. METOPROLOL [Concomitant]

REACTIONS (11)
  - ANAEMIA [None]
  - BLOOD GLUCOSE INCREASED [None]
  - BODY TEMPERATURE DECREASED [None]
  - CONSTIPATION [None]
  - DIARRHOEA [None]
  - FATIGUE [None]
  - LYMPHOEDEMA [None]
  - OEDEMA PERIPHERAL [None]
  - PITTING OEDEMA [None]
  - SINUS CONGESTION [None]
  - WHITE BLOOD CELL COUNT DECREASED [None]
